FAERS Safety Report 5694476-X (Version None)
Quarter: 2008Q2

REPORT INFORMATION
  Report Type: 
  Country: None (occurrence: None)
  Receive Date: 20080404
  Receipt Date: 20080401
  Transmission Date: 20081010
  Serious: Yes (Hospitalization)
  Sender: FDA-Public Use
  Company Number: FR-WYE-G01335408

PATIENT
  Sex: Female
  Weight: 20.65 kg

DRUGS (2)
  1. ADVIL ENFANTS ET NOURRISSONS [Suspect]
     Dosage: UNKNOWN
     Route: 048
     Dates: start: 20080205, end: 20080205
  2. DOLIPRANE [Concomitant]
     Dosage: UNKNOWN
     Route: 048
     Dates: start: 20080205

REACTIONS (1)
  - ABSCESS NECK [None]
